FAERS Safety Report 4484982-8 (Version None)
Quarter: 2004Q3

REPORT INFORMATION
  Report Type: 
  Country: None (occurrence: None)
  Receive Date: 20040921
  Receipt Date: 20030922
  Transmission Date: 20050211
  Serious: Yes (Hospitalization)
  Sender: FDA-Public Use
  Company Number: 163-20785-03090583

PATIENT
  Age: 85 Year
  Sex: Male

DRUGS (1)
  1. THALOMID [Suspect]
     Indication: PROSTATE CANCER
     Dosage: 200 MG, QD, ORAL
     Route: 048
     Dates: start: 20030730, end: 20030911

REACTIONS (4)
  - BEDRIDDEN [None]
  - CHEST PAIN [None]
  - DIZZINESS [None]
  - PULMONARY EMBOLISM [None]
